FAERS Safety Report 10159554 (Version 1)
Quarter: 2014Q2

REPORT INFORMATION
  Report Type: Report from Study
  Country: US (occurrence: US)
  Receive Date: 20140508
  Receipt Date: 20140508
  Transmission Date: 20141212
  Serious: Yes (Hospitalization)
  Sender: FDA-Public Use
  Company Number: PHEH2014US009086

PATIENT
  Sex: Female

DRUGS (10)
  1. NEORAL [Suspect]
     Indication: RENAL TRANSPLANT
     Dosage: 25 MG, BID
     Route: 048
  2. ATORVASTATIN [Concomitant]
     Indication: RENAL TRANSPLANT
     Dosage: 40 MG, QD
     Route: 048
  3. IMURAN [Concomitant]
     Indication: RENAL TRANSPLANT
     Dosage: 50 MG, QD
     Route: 048
  4. PREDNISONE [Concomitant]
     Indication: RENAL TRANSPLANT
     Dosage: 5 MG, QD
     Route: 048
  5. FOLIC ACID [Concomitant]
     Indication: RENAL TRANSPLANT
     Dosage: 1 MG, QD
     Route: 048
  6. MICROBID [Concomitant]
     Dosage: UNK UKN, BID (FOR 10 DAYS)
     Route: 048
  7. MULTIVITAMIN [Concomitant]
     Indication: RENAL TRANSPLANT
     Dosage: UNK UKN, QD
     Route: 048
  8. PEPCID [Concomitant]
     Indication: RENAL TRANSPLANT
     Dosage: 20 MG, QD
     Route: 048
  9. SODIUM BICARBONATE [Concomitant]
     Indication: RENAL TRANSPLANT
     Dosage: 650 MG, BID
  10. ZYRTEC [Concomitant]
     Indication: RENAL TRANSPLANT
     Dosage: 10 MG, QD

REACTIONS (6)
  - Menstruation delayed [Unknown]
  - Discomfort [Unknown]
  - Hot flush [Unknown]
  - Pyelonephritis [Unknown]
  - Dysuria [Unknown]
  - Rash [Recovering/Resolving]
